FAERS Safety Report 4974816-7 (Version None)
Quarter: 2006Q1

REPORT INFORMATION
  Report Type: 
  Country: None (occurrence: None)
  Receive Date: 20060227
  Receipt Date: 20060103
  Transmission Date: 20060701
  Serious: No
  Sender: FDA-Public Use
  Company Number: PHEH2006US00443

PATIENT
  Age: 49 Year
  Sex: Male

DRUGS (4)
  1. ENABLEX [Suspect]
     Indication: HYPERTONIC BLADDER
     Dosage: 15 MG, QD
  2. ZOCOR [Concomitant]
  3. THYROID TAB [Concomitant]
  4. NSAID'S [Concomitant]

REACTIONS (4)
  - CONSTIPATION [None]
  - DRY MOUTH [None]
  - DYSPEPSIA [None]
  - VISION BLURRED [None]
